FAERS Safety Report 5788161-3 (Version None)
Quarter: 2008Q2

REPORT INFORMATION
  Report Type: 
  Country: None (occurrence: None)
  Receive Date: 20080625
  Receipt Date: 20080530
  Transmission Date: 20081010
  Serious: No
  Sender: FDA-Public Use
  Company Number: US-BOEHRINGER INGELHEIM GMBH, GERMANY-2008-BP-08448BP

PATIENT
  Sex: Male

DRUGS (5)
  1. AGGRENOX [Suspect]
     Indication: TRANSIENT ISCHAEMIC ATTACK
     Route: 048
     Dates: start: 20080503, end: 20080524
  2. AGGRENOX [Suspect]
     Route: 048
     Dates: start: 20080525
  3. ASPIRIN [Concomitant]
  4. QUESTRAN [Concomitant]
  5. CHOLESTYRAM [Concomitant]
     Indication: BLOOD CHOLESTEROL INCREASED

REACTIONS (5)
  - ABDOMINAL PAIN [None]
  - DIZZINESS [None]
  - HEADACHE [None]
  - MUSCLE TWITCHING [None]
  - NAUSEA [None]
